FAERS Safety Report 7998194-4 (Version None)
Quarter: 2011Q4

REPORT INFORMATION
  Report Type: 
  Country: None (occurrence: None)
  Receive Date: 20111221
  Receipt Date: 20110404
  Transmission Date: 20120403
  Serious: No
  Sender: FDA-Public Use
  Company Number: US-GLAXOSMITHKLINE-A0921301A

PATIENT
  Age: 73 Year
  Sex: Female

DRUGS (26)
  1. LOVAZA [Suspect]
     Indication: BLOOD TRIGLYCERIDES INCREASED
     Dosage: 2G TWICE PER DAY
     Route: 048
     Dates: start: 20110402
  2. MICARDIS [Concomitant]
  3. VITAMIN D [Concomitant]
  4. PREDNISONE TAB [Concomitant]
  5. LEVOXYL [Concomitant]
  6. FUROSEMIDE [Concomitant]
  7. FENOFIBRATE [Concomitant]
  8. CYCLOSPORINE [Concomitant]
  9. VIACTIV [Concomitant]
  10. TYLENOL-500 [Concomitant]
  11. PHILLIPS [Concomitant]
  12. CARVEDILOL [Concomitant]
  13. CLARITIN [Concomitant]
  14. MULTIVITAMIN [Concomitant]
  15. ACETAMINOPHEN [Concomitant]
  16. PRAZOSIN HCL [Concomitant]
  17. EFFEXOR [Concomitant]
  18. DULCOLAX [Concomitant]
  19. NYSTATIN [Concomitant]
  20. ASA BABY [Concomitant]
  21. NORVASC [Concomitant]
  22. REQUIP [Concomitant]
  23. LESCOL XL [Concomitant]
  24. GLUCOSAMINE [Concomitant]
  25. CENTRUM SILVER [Concomitant]
  26. PRAZOSIN HCL [Concomitant]

REACTIONS (2)
  - DYSGEUSIA [None]
  - NAUSEA [None]
